FAERS Safety Report 20810398 (Version 1)
Quarter: 2022Q2

REPORT INFORMATION
  Report Type: Spontaneous
  Country: US (occurrence: US)
  Receive Date: 20220510
  Receipt Date: 20220510
  Transmission Date: 20220721
  Serious: No
  Sender: FDA-Public Use
  Company Number: US-OYSTER POINT PHARMA, INC.-2022OYS00329

PATIENT
  Age: 75 Year
  Sex: Female
  Weight: 81.647 kg

DRUGS (1)
  1. TYRVAYA [Suspect]
     Active Substance: VARENICLINE TARTRATE
     Indication: Dry eye
     Dosage: 0.06 MG (1 PUFF IN EACH NOSTRIL), 2X/DAY
     Route: 045
     Dates: start: 20220315

REACTIONS (4)
  - Administration site pain [Not Recovered/Not Resolved]
  - Product lot number issue [Not Recovered/Not Resolved]
  - Wrong technique in product usage process [Recovered/Resolved]
  - Incorrect dose administered by device [Not Recovered/Not Resolved]

NARRATIVE: CASE EVENT DATE: 20220301
